FAERS Safety Report 8579389-8 (Version None)
Quarter: 2012Q3

REPORT INFORMATION
  Report Type: 
  Country: None (occurrence: None)
  Receive Date: 20120808
  Receipt Date: 20120806
  Transmission Date: 20120928
  Serious: Yes (Hospitalization)
  Sender: FDA-Public Use
  Company Number: JP-ROCHE-577135

PATIENT
  Sex: Female
  Weight: 60.5 kg

DRUGS (20)
  1. ZOLPIDEM [Concomitant]
  2. TRIMEBUTINE [Concomitant]
  3. ZOPICLONE [Concomitant]
     Dates: start: 20080902
  4. TRIAZOLAM [Concomitant]
  5. N-METHYLSCOPOLAMINE METHYLSULFATE [Concomitant]
     Dosage: DRUG REPORTED AS METYL SCOPOLAMINE METYLSULFATE
  6. ETIZOLAM [Concomitant]
  7. BETAMETHASONE [Concomitant]
     Dates: start: 20081021
  8. AVASTIN [Suspect]
     Indication: BREAST CANCER
     Dosage: DOSAGE FORM REPORTED AS 950 MG
     Route: 042
     Dates: start: 20080630, end: 20080630
  9. CYCLOPHOSPHAMIDE [Suspect]
     Indication: BREAST CANCER
     Dosage: DOSAGE FORM REPORTED AS 955 MG
     Route: 042
     Dates: start: 20080630, end: 20080630
  10. CYCLOPHOSPHAMIDE [Suspect]
     Dosage: LAST DOSE PRIOR TO SAE: 24 SEPT 2008
     Route: 042
     Dates: start: 20080812, end: 20080924
  11. LAC-B [Concomitant]
  12. KETOPROFEN [Concomitant]
  13. EPIRUBICIN HYDROCHLORIDE [Suspect]
     Indication: BREAST CANCER
     Dosage: DOSAGE FORM REPORTED AS 143 MG
     Route: 042
     Dates: start: 20080630, end: 20080630
  14. EPIRUBICIN HYDROCHLORIDE [Suspect]
     Dosage: LAST DOSE PRIOR TO SAE: 24 SEP 2008
     Route: 042
     Dates: start: 20080812, end: 20080924
  15. HYALURONATE SODIUM [Concomitant]
  16. DOCETAXEL [Suspect]
     Indication: BREAST CANCER
     Dosage: DRUG NAME: DOCETAXEL HYDRATE, DOSE FORM: 109 MG, LAST DOSE PRIOR TO SAE: 07 JAN 2009
     Route: 042
     Dates: start: 20081022, end: 20090107
  17. AVASTIN [Suspect]
     Dosage: LAST DOSE PRIOR TO SAE: 03 SEP 2008
     Route: 042
     Dates: start: 20080812, end: 20080922
  18. MAGNESIUM OXIDE [Concomitant]
  19. ALPRAZOLAM [Concomitant]
     Dates: start: 20080711
  20. REBAMIPIDE [Concomitant]
     Dates: start: 20090113

REACTIONS (1)
  - DIVERTICULITIS INTESTINAL HAEMORRHAGIC [None]
